FAERS Safety Report 9312381 (Version 1)
Quarter: 2013Q2

REPORT INFORMATION
  Report Type: Report from Study
  Country: UA (occurrence: UA)
  Receive Date: 20130528
  Receipt Date: 20130528
  Transmission Date: 20140414
  Serious: Yes (Death)
  Sender: FDA-Public Use
  Company Number: UA-TEVA-309810ISR

PATIENT
  Age: 57 Year
  Sex: Male
  Weight: 83.3 kg

DRUGS (18)
  1. TL011 [Suspect]
     Indication: DIFFUSE LARGE B-CELL LYMPHOMA
     Dosage: 0 MILLIGRAM DAILY;
     Route: 042
     Dates: start: 20110829, end: 20111031
  2. MABTHERA [Suspect]
     Indication: DIFFUSE LARGE B-CELL LYMPHOMA
     Dosage: 375 MG/M2
     Route: 042
     Dates: start: 20110829, end: 20111031
  3. VINCRISTINE [Suspect]
     Dates: start: 20111031
  4. DOXORUBICIN NOS [Suspect]
     Dates: start: 20111031
  5. CYCLOPHOSPHAMIDE [Suspect]
     Dates: start: 20111031
  6. PARACETAMOL [Concomitant]
     Indication: PREMEDICATION
     Dosage: 1 GRAM DAILY;
     Route: 048
     Dates: start: 20111010, end: 20111010
  7. PARACETAMOL [Concomitant]
     Dosage: 1 GRAM DAILY;
     Route: 048
     Dates: start: 20111031, end: 20111031
  8. XARELTO [Concomitant]
     Indication: PROPHYLAXIS
     Dosage: 10 MILLIGRAM DAILY;
     Route: 048
     Dates: start: 20111006, end: 20111110
  9. CLEMASTINE [Concomitant]
     Indication: PROPHYLAXIS
     Dosage: 2 MILLIGRAM DAILY;
     Route: 042
     Dates: start: 20111010, end: 20111010
  10. CLEMASTINE [Concomitant]
     Dosage: 2 MILLIGRAM DAILY;
     Route: 042
     Dates: start: 20111031, end: 20111031
  11. EMESETRON [Concomitant]
     Indication: PROPHYLAXIS
     Dosage: 8 MILLIGRAM DAILY;
     Route: 042
     Dates: start: 20111010, end: 20111010
  12. EMESETRON [Concomitant]
     Dosage: 8 MILLIGRAM DAILY;
     Route: 042
     Dates: start: 20111031, end: 20111031
  13. LANSOPRAZOL [Concomitant]
     Indication: PROPHYLAXIS
     Dosage: 30 MILLIGRAM DAILY;
     Route: 048
     Dates: start: 20111010, end: 20111014
  14. LANSOPRAZOL [Concomitant]
     Dosage: 30 MILLIGRAM DAILY;
     Route: 048
     Dates: start: 20111031, end: 20111104
  15. FRAGMIN [Concomitant]
     Indication: PROPHYLAXIS
     Dosage: 2500 UNKNOWN DAILY;
     Dates: start: 20111010, end: 20111014
  16. FRAGMIN [Concomitant]
     Dosage: 2500 UNKNOWN DAILY;
     Dates: start: 20111031, end: 20111104
  17. FRAXIPARIN [Concomitant]
     Indication: EMBOLISM
     Route: 058
     Dates: start: 20110912, end: 20111023
  18. ACETYLSALICYLIC ACID [Concomitant]
     Indication: EMBOLISM
     Dosage: 100 MILLIGRAM DAILY;
     Route: 048
     Dates: start: 20110912, end: 20111110

REACTIONS (1)
  - Embolism [Fatal]
